FAERS Safety Report 5006161-8 (Version None)
Quarter: 2006Q1

REPORT INFORMATION
  Report Type: 
  Country: None (occurrence: None)
  Receive Date: 20060328
  Receipt Date: 20051025
  Transmission Date: 20060701
  Serious: Yes (Hospitalization)
  Sender: FDA-Public Use
  Company Number: K200500265

PATIENT
  Age: 51 Year
  Sex: Female
  Weight: 79 kg

DRUGS (16)
  1. ALTACE [Suspect]
     Dosage: 2.5MG, QD, ORAL
     Route: 048
  2. HEPARIN [Suspect]
     Dosage: 4,700 U, BOLUS IV BOLUS; 2,700 U(15 U/KG/HR) INTRAVENOUS
     Dates: start: 20041018, end: 20041018
  3. HEPARIN [Suspect]
     Dosage: 4,700 U, BOLUS IV BOLUS; 2,700 U(15 U/KG/HR) INTRAVENOUS
     Dates: start: 20041018, end: 20041018
  4. INTEGRILIN [Suspect]
     Dosage: 28.8 MG(180 MCG/KG) BOLUS, IV BOLUS; 54 MG(1 MCG/KG/MIN), INTRAVENOUS
     Dates: start: 20041018, end: 20041018
  5. INTEGRILIN [Suspect]
     Dosage: 28.8 MG(180 MCG/KG) BOLUS, IV BOLUS; 54 MG(1 MCG/KG/MIN), INTRAVENOUS
     Dates: start: 20041018, end: 20041019
  6. ASPIRIN [Concomitant]
  7. PLAVIX [Concomitant]
  8. NORVASC [Concomitant]
  9. DIOVAN [Concomitant]
  10. LASIX [Concomitant]
  11. ZOCOR [Concomitant]
  12. GABAPENTIN [Concomitant]
  13. NEXIUM [Concomitant]
  14. REGLAN [Concomitant]
  15. AMANTADINE HCL [Concomitant]
  16. TRIMETHOPRIM [Concomitant]

REACTIONS (2)
  - BLOOD CREATININE INCREASED [None]
  - RENAL FAILURE [None]
